FAERS Safety Report 6536081-9 (Version None)
Quarter: 2009Q4

REPORT INFORMATION
  Report Type: 
  Country: None (occurrence: None)
  Receive Date: 20091229
  Receipt Date: 20090311
  Transmission Date: 20100525
  Serious: Yes (Other)
  Sender: FDA-Public Use
  Company Number: WAES 0903USA01836

PATIENT
  Sex: Male

DRUGS (1)
  1. ZETIA [Suspect]
     Indication: BLOOD CHOLESTEROL INCREASED
     Dosage: PO
     Route: 048
     Dates: start: 20090101, end: 20090101

REACTIONS (2)
  - ALANINE AMINOTRANSFERASE INCREASED [None]
  - DYSPEPSIA [None]
